FAERS Safety Report 4519724-0 (Version None)
Quarter: 2004Q4

REPORT INFORMATION
  Report Type: 
  Country: None (occurrence: None)
  Receive Date: 20041207
  Receipt Date: 20041125
  Transmission Date: 20050328
  Serious: Yes (Death)
  Sender: FDA-Public Use
  Company Number: APCDSS2003000706

PATIENT
  Sex: Female
  Weight: 57 kg

DRUGS (12)
  1. REMICADE [Suspect]
     Indication: CROHN'S DISEASE
     Dosage: 5MG/KG
     Route: 041
  2. SALAZOPYRIN [Suspect]
     Indication: CROHN'S DISEASE
     Route: 065
     Dates: start: 20030124, end: 20030223
  3. PREDONINE [Concomitant]
     Indication: CROHN'S DISEASE
     Route: 049
  4. PENTASA [Concomitant]
     Indication: CROHN'S DISEASE
     Route: 049
  5. DAIKENCHUYA [Concomitant]
     Indication: CROHN'S DISEASE
     Route: 049
  6. OZEX [Concomitant]
     Indication: CROHN'S DISEASE
     Route: 049
  7. POSTERISAN FORTE [Concomitant]
     Route: 061
  8. POSTERISAN FORTE [Concomitant]
     Route: 061
  9. POSTERISAN FORTE [Concomitant]
     Route: 061
  10. POSTERISAN FORTE [Concomitant]
     Route: 061
  11. POSTERISAN FORTE [Concomitant]
     Indication: CROHN'S DISEASE
     Route: 061
  12. ENTERAL NUTRITION [Concomitant]

REACTIONS (14)
  - ALANINE AMINOTRANSFERASE INCREASED [None]
  - ASPARTATE AMINOTRANSFERASE INCREASED [None]
  - BLOOD ALKALINE PHOSPHATASE INCREASED [None]
  - BLOOD LACTATE DEHYDROGENASE INCREASED [None]
  - BLOOD POTASSIUM INCREASED [None]
  - EOSINOPHILIC MYOCARDITIS [None]
  - GAMMA-GLUTAMYLTRANSFERASE INCREASED [None]
  - HEADACHE [None]
  - HEPATIC CONGESTION [None]
  - LYMPHOCYTE STIMULATION TEST POSITIVE [None]
  - PYREXIA [None]
  - RASH [None]
  - RESPIRATORY DISTRESS [None]
  - TYPE IV HYPERSENSITIVITY REACTION [None]
